FAERS Safety Report 6961422 (Version 4)
Quarter: 2012Q4

REPORT INFORMATION
  Report Type: 
  Country: US (occurrence: US)
  Receive Date: 20060525
  Receipt Date: 20121101
  Transmission Date: 20130627
  Serious: Yes (Other)
  Sender: FDA-Public Use
  Company Number: US-PFIZER INC-2006065177

PATIENT
  Age: 54 Year
  Sex: Female

DRUGS (9)
  1. PROVERA [Suspect]
     Indication: HORMONE REPLACEMENT THERAPY
     Route: 048
     Dates: start: 1996, end: 2002
  2. PREMARIN [Suspect]
     Indication: HORMONE REPLACEMENT THERAPY
     Dosage: UNK
     Dates: start: 199809, end: 200010
  3. PREMPRO [Suspect]
     Indication: HORMONE REPLACEMENT THERAPY
     Dosage: UNK
     Dates: start: 1996, end: 199912
  4. PREMPRO [Suspect]
     Dosage: UNK
     Dates: start: 200012, end: 200204
  5. CYCRIN [Suspect]
     Indication: HORMONE REPLACEMENT THERAPY
     Dosage: UNK
  6. MEDROXYPROGESTERONE ACETATE [Suspect]
     Indication: HORMONE REPLACEMENT THERAPY
     Dosage: UNK
     Route: 048
     Dates: start: 200005, end: 200011
  7. NEURONTIN [Concomitant]
     Indication: BACK PAIN
     Dosage: UNK
     Dates: start: 2001
  8. IBUPROFEN [Concomitant]
     Indication: INFLAMMATION
     Dosage: UNK
  9. OMEPRAZOLE [Concomitant]
     Indication: STOMACH ULCER
     Dosage: UNK
     Dates: end: 2006

REACTIONS (1)
  - Invasive ductal breast carcinoma [Unknown]
